FAERS Safety Report 23763709 (Version 1)
Quarter: 2024Q2

REPORT INFORMATION
  Report Type: Report from Study
  Country: US (occurrence: US)
  Receive Date: 20240419
  Receipt Date: 20240419
  Transmission Date: 20240716
  Serious: Yes (Hospitalization)
  Sender: FDA-Public Use
  Company Number: US-PFIZER INC-202400081118

PATIENT
  Age: 79 Year
  Sex: Female

DRUGS (19)
  1. IBRANCE [Suspect]
     Active Substance: PALBOCICLIB
     Dosage: ONE CAPSULE DAILY FOR 21 DAYS ON, 7 DAYS OFF
     Route: 048
     Dates: start: 20240327, end: 20240409
  2. ALBUTEROL [Concomitant]
     Active Substance: ALBUTEROL
  3. AMITRIPTYLINE [Concomitant]
     Active Substance: AMITRIPTYLINE
  4. ATORVASTATIN [Concomitant]
     Active Substance: ATORVASTATIN
  5. CHLORTHALIDONE [Concomitant]
     Active Substance: CHLORTHALIDONE
  6. FASLODEX [Concomitant]
     Active Substance: FULVESTRANT
  7. FERROUS SULFATE [Concomitant]
     Active Substance: FERROUS SULFATE
  8. FLUTICASONE [Concomitant]
     Active Substance: FLUTICASONE
  9. INSULIN HUMAN [Concomitant]
     Active Substance: INSULIN HUMAN
  10. HYDROMORPHONE [Concomitant]
     Active Substance: HYDROMORPHONE
  11. LISINOPRIL [Concomitant]
     Active Substance: LISINOPRIL
  12. MORPHINE [Concomitant]
     Active Substance: MORPHINE
  13. NALOXONE [Concomitant]
     Active Substance: NALOXONE
  14. INSULIN HUMAN [Concomitant]
     Active Substance: INSULIN HUMAN
  15. ONDANSETRON [Concomitant]
     Active Substance: ONDANSETRON
  16. POTASSIUM CHLORIDE [Concomitant]
     Active Substance: POTASSIUM CHLORIDE
  17. PROAIR HFA [Concomitant]
     Active Substance: ALBUTEROL SULFATE
     Dosage: INHALATION
  18. PROMETHAZINE DM [Concomitant]
     Active Substance: DEXTROMETHORPHAN HYDROBROMIDE\PROMETHAZINE HYDROCHLORIDE
  19. CHOLECALCIFEROL [Concomitant]
     Active Substance: CHOLECALCIFEROL

REACTIONS (4)
  - Cerebrovascular accident [Recovering/Resolving]
  - Blood creatinine increased [Unknown]
  - Blood potassium decreased [Unknown]
  - Arteriosclerosis [Unknown]

NARRATIVE: CASE EVENT DATE: 20240405
